FAERS Safety Report 9200166 (Version 4)
Quarter: 2014Q2

REPORT INFORMATION
  Report Type: Spontaneous
  Country: US (occurrence: US)
  Receive Date: 20130329
  Receipt Date: 20140507
  Transmission Date: 20141212
  Serious: Yes (Hospitalization, Other)
  Sender: FDA-Public Use
  Company Number: US-009507513-1303USA013358

PATIENT
  Sex: Female
  Weight: 56.33 kg

DRUGS (5)
  1. FOSAMAX [Suspect]
     Indication: OSTEOPOROSIS
     Dosage: 70 MG, QW
     Route: 048
     Dates: start: 200601, end: 2009
  2. ALENDRONATE SODIUM [Suspect]
     Indication: OSTEOPOROSIS
     Dosage: 70 MG, QW
     Route: 048
     Dates: start: 2008, end: 201007
  3. NOVOLOG [Concomitant]
     Indication: INSULIN-REQUIRING TYPE 2 DIABETES MELLITUS
     Dosage: UNK
     Dates: start: 1961
  4. LOSARTAN POTASSIUM [Concomitant]
     Indication: HYPERTENSION
  5. ESTROGENS (UNSPECIFIED) [Concomitant]
     Dosage: UNK
     Dates: start: 1992

REACTIONS (31)
  - Femur fracture [Recovered/Resolved]
  - Intramedullary rod insertion [Unknown]
  - Confusional state [Unknown]
  - Anaemia postoperative [Unknown]
  - Fluid overload [Unknown]
  - Cardiac failure congestive [Unknown]
  - Hypercoagulation [Unknown]
  - Hypotension [Unknown]
  - Chest pain [Unknown]
  - Gastrointestinal haemorrhage [Unknown]
  - Myocardial ischaemia [Unknown]
  - Humerus fracture [Unknown]
  - Abdominal pain [Unknown]
  - Fungal infection [Not Recovered/Not Resolved]
  - Impaired healing [Unknown]
  - Osteopenia [Unknown]
  - Urinary tract infection [Unknown]
  - Anaemia [Not Recovered/Not Resolved]
  - Coronary angioplasty [Unknown]
  - Coronary artery disease [Unknown]
  - Fracture nonunion [Recovered/Resolved]
  - Hyperkeratosis [Unknown]
  - Diabetes mellitus inadequate control [Unknown]
  - Foot fracture [Unknown]
  - Exostosis [Unknown]
  - Fall [Unknown]
  - Rib fracture [Unknown]
  - Hyperparathyroidism secondary [Unknown]
  - Coronary arterial stent insertion [Unknown]
  - Pelvic floor repair [Unknown]
  - Cardiac murmur [Unknown]
